FAERS Safety Report 4498222-7 (Version None)
Quarter: 2004Q4

REPORT INFORMATION
  Report Type: 
  Country: None (occurrence: None)
  Receive Date: 20041110
  Receipt Date: 20041027
  Transmission Date: 20050328
  Serious: Yes (Hospitalization)
  Sender: FDA-Public Use
  Company Number: CA-MERCK-0411CAN00036

PATIENT
  Age: 6 Day
  Sex: Male
  Weight: 1 kg

DRUGS (6)
  1. INDOCIN I.V. [Suspect]
     Indication: PATENT DUCTUS ARTERIOSUS
     Route: 041
  2. HYDROCORTISONE SODIUM SUCCINATE [Suspect]
     Indication: HYPOTENSION
     Route: 065
  3. DOPAMINE HYDROCHLORIDE [Concomitant]
     Route: 041
  4. EPINEPHRINE [Concomitant]
     Route: 041
  5. OXYGEN [Concomitant]
     Route: 065
  6. [THERAPY UNSPECIFIED] [Concomitant]
     Route: 065

REACTIONS (21)
  - ACTIVATED PARTIAL THROMBOPLASTIN TIME PROLONGED [None]
  - ASCITES [None]
  - COAGULOPATHY [None]
  - DISSEMINATED INTRAVASCULAR COAGULATION [None]
  - GASTRIC HAEMORRHAGE [None]
  - HAEMOGLOBIN DECREASED [None]
  - HEPATIC HAEMATOMA [None]
  - HYPERTENSION [None]
  - ILEAL PERFORATION [None]
  - LEUKOPENIA NEONATAL [None]
  - NECROTISING ENTEROCOLITIS NEONATAL [None]
  - NEONATAL APNOEIC ATTACK [None]
  - NEONATAL DISORDER [None]
  - NEONATAL HYPOTENSION [None]
  - NEONATAL RESPIRATORY DISTRESS SYNDROME [None]
  - OLIGURIA [None]
  - PNEUMOPERITONEUM [None]
  - PROTHROMBIN TIME SHORTENED [None]
  - STAPHYLOCOCCAL SEPSIS [None]
  - THROMBOCYTOPENIA NEONATAL [None]
  - THROMBOSIS [None]
